FAERS Safety Report 14403619 (Version 1)
Quarter: 2020Q3

REPORT INFORMATION
  Report Type: Spontaneous
  Country: DE (occurrence: DE)
  Receive Date: 20180117
  Receipt Date: 20180117
  Transmission Date: 20201104
  Serious: Yes (Other)
  Sender: FDA-Public Use
  Company Number: DE-ROCHE-2056141

PATIENT
  Age: 70 Year
  Sex: Male

DRUGS (1)
  1. IBANDRONIC ACID. [Suspect]
     Active Substance: IBANDRONIC ACID
     Indication: PLASMA CELL MYELOMA
     Dosage: UNK
     Route: 065

REACTIONS (2)
  - Osteonecrosis of jaw [Unknown]
  - Actinomycosis [Unknown]
